FAERS Safety Report 5038129-X (Version None)
Quarter: 2006Q2

REPORT INFORMATION
  Report Type: 
  Country: None (occurrence: None)
  Receive Date: 20060626
  Receipt Date: 20060616
  Transmission Date: 20061013
  Serious: No
  Sender: FDA-Public Use
  Company Number: TPA2004A00291

PATIENT
  Age: 52 Year
  Sex: Male

DRUGS (8)
  1. ACTOS [Suspect]
     Indication: DIABETES MELLITUS
     Dosage: PER ORAL
     Route: 048
     Dates: start: 20030501
  2. GLUCOPHAGE [Concomitant]
  3. LANTUS [Concomitant]
  4. HUMALOG INSULIN (INSULIN LISPRO) [Concomitant]
  5. METOPROLOL SUCCINATE [Concomitant]
  6. LASIX [Concomitant]
  7. PRINIVIL [Concomitant]
  8. DICLOFENAC (DICLOFENAC) [Concomitant]

REACTIONS (4)
  - FLUID RETENTION [None]
  - MACULAR OEDEMA [None]
  - PITTING OEDEMA [None]
  - WEIGHT INCREASED [None]
